FAERS Safety Report 7715142-2 (Version None)
Quarter: 2011Q3

REPORT INFORMATION
  Report Type: 
  Country: None (occurrence: None)
  Receive Date: 20110829
  Receipt Date: 20110818
  Transmission Date: 20111222
  Serious: Yes (Other)
  Sender: FDA-Public Use
  Company Number: PHEH2010US03507

PATIENT
  Sex: Female

DRUGS (24)
  1. IBUPROFEN [Concomitant]
     Dosage: 800 MG, UNK
  2. NABUMETONE [Concomitant]
  3. AMBIEN [Concomitant]
  4. LORAZEPAM [Concomitant]
  5. TALWIN [Concomitant]
  6. AREDIA [Suspect]
     Indication: BREAST CANCER
  7. FENTANYL [Concomitant]
  8. ROBINUL [Concomitant]
     Dosage: 1 MG, UNK
  9. AMITRIPTYLINE HCL [Concomitant]
  10. PAMIDRONATE DISODIUM [Concomitant]
  11. METFORMIN HCL [Concomitant]
  12. VICODIN [Concomitant]
  13. EFFEXOR [Concomitant]
  14. PROTONIX [Concomitant]
  15. CYTOXAN [Concomitant]
  16. FEMARA [Concomitant]
  17. FERROUS SULFATE TAB [Concomitant]
  18. BUPROPION HCL [Concomitant]
     Dosage: 75 MG, UNK
  19. LITHIUM CARBONATE [Concomitant]
  20. CLONAZEPAM [Concomitant]
  21. TRIPHASIL-21 [Concomitant]
  22. AROMASIN [Concomitant]
  23. TYLENOL-500 [Concomitant]
  24. DIFLUCAN [Concomitant]

REACTIONS (52)
  - GASTROOESOPHAGEAL REFLUX DISEASE [None]
  - BONE DISORDER [None]
  - DIARRHOEA [None]
  - GINGIVAL DISORDER [None]
  - CERVICAL DYSPLASIA [None]
  - DYSHIDROSIS [None]
  - MAJOR DEPRESSION [None]
  - PAIN [None]
  - DEFORMITY [None]
  - METASTASES TO LYMPH NODES [None]
  - METASTASES TO SPINE [None]
  - TOOTHACHE [None]
  - PLANTAR FASCIITIS [None]
  - OSTEOARTHRITIS [None]
  - OSTEONECROSIS OF JAW [None]
  - POLYCYSTIC OVARIES [None]
  - HEADACHE [None]
  - CORNEAL DEPOSITS [None]
  - ADJUSTMENT DISORDER [None]
  - CYSTITIS BACTERIAL [None]
  - HYPERLIPIDAEMIA [None]
  - PERIODONTAL DISEASE [None]
  - DRUG HYPERSENSITIVITY [None]
  - BONE LOSS [None]
  - IMPAIRED HEALING [None]
  - METASTASES TO CENTRAL NERVOUS SYSTEM [None]
  - DENTAL CARIES [None]
  - ALOPECIA [None]
  - URINARY TRACT INFECTION [None]
  - NAUSEA [None]
  - TOOTH LOSS [None]
  - ANXIETY [None]
  - DRY MOUTH [None]
  - BACK PAIN [None]
  - BREAST CANCER RECURRENT [None]
  - METASTASES TO BONE [None]
  - BURNING SENSATION [None]
  - VULVOVAGINAL PAIN [None]
  - INGROWING NAIL [None]
  - DECREASED INTEREST [None]
  - INJURY [None]
  - HYPERHIDROSIS [None]
  - HIRSUTISM [None]
  - VESTIBULITIS [None]
  - BIPOLAR DISORDER [None]
  - ORAL CANDIDIASIS [None]
  - EATING DISORDER [None]
  - OBESITY [None]
  - HOT FLUSH [None]
  - OSTEORADIONECROSIS [None]
  - ARTHRALGIA [None]
  - EAR PAIN [None]
